FAERS Safety Report 4409363-4 (Version None)
Quarter: 2004Q3

REPORT INFORMATION
  Report Type: 
  Country: None (occurrence: None)
  Receive Date: 20040727
  Receipt Date: 20040727
  Transmission Date: 20050211
  Serious: Yes (Hospitalization, Other)
  Sender: FDA-Public Use
  Company Number: None

PATIENT
  Age: 67 Year
  Sex: Female
  Weight: 52.6173 kg

DRUGS (12)
  1. MANNITOL [Suspect]
     Dosage: 200 G IV
     Route: 042
     Dates: start: 20040209
  2. PHENYTOIN [Concomitant]
  3. LOPRESSOR [Concomitant]
  4. GLUCOSAMINE [Concomitant]
  5. LEXAPRO [Concomitant]
  6. AMBIEN [Concomitant]
  7. ZOFRAN [Concomitant]
  8. PEPCID [Concomitant]
  9. D5WNS [Concomitant]
  10. SODIUM NITROPRUSSIDE [Concomitant]
  11. DECADRON [Concomitant]
  12. LORATADINE [Concomitant]

REACTIONS (4)
  - AGITATION [None]
  - BLOOD OSMOLARITY INCREASED [None]
  - ELECTROLYTE IMBALANCE [None]
  - MEDICATION ERROR [None]
